FAERS Safety Report 6270104-X (Version None)
Quarter: 2009Q3

REPORT INFORMATION
  Report Type: 
  Country: None (occurrence: None)
  Receive Date: 20090714
  Receipt Date: 20090701
  Transmission Date: 20100115
  Serious: Yes (Other)
  Sender: FDA-Public Use
  Company Number: 2009AL002306

PATIENT
  Age: 51 Year
  Sex: Female

DRUGS (1)
  1. SERTRALINE HYDROCHLORIDE [Suspect]
     Indication: DEPRESSION
     Dosage: 100 MG;QD;PO
     Route: 048

REACTIONS (6)
  - CONVULSION [None]
  - FACIAL PALSY [None]
  - HEADACHE [None]
  - PAIN [None]
  - PRODUCT SUBSTITUTION ISSUE [None]
  - TINNITUS [None]
